FAERS Safety Report 7109370-7 (Version None)
Quarter: 2010Q4

REPORT INFORMATION
  Report Type: 
  Country: None (occurrence: None)
  Receive Date: 20101118
  Receipt Date: 20101109
  Transmission Date: 20110411
  Serious: Yes (Other)
  Sender: FDA-Public Use
  Company Number: US-BIOGENIDEC-2010BI039136

PATIENT
  Age: 54 Year
  Sex: Female
  Weight: 79 kg

DRUGS (2)
  1. AVONEX [Suspect]
     Indication: MULTIPLE SCLEROSIS
     Route: 030
     Dates: start: 20030303, end: 20050101
  2. AVONEX [Suspect]
     Route: 030
     Dates: start: 20050101

REACTIONS (13)
  - ASTHENIA [None]
  - AUTOIMMUNE DISORDER [None]
  - CARPAL TUNNEL SYNDROME [None]
  - FALL [None]
  - GLUCOSE TOLERANCE IMPAIRED [None]
  - HYPERSENSITIVITY [None]
  - HYPERTENSION [None]
  - MULTIPLE SCLEROSIS RELAPSE [None]
  - MYASTHENIA GRAVIS [None]
  - PAIN [None]
  - PHOTOPHOBIA [None]
  - STRABISMUS [None]
  - WEIGHT DECREASED [None]
